FAERS Safety Report 16497160 (Version 2)
Quarter: 2019Q4

REPORT INFORMATION
  Report Type: Spontaneous
  Country: US (occurrence: US)
  Receive Date: 20190628
  Receipt Date: 20191025
  Transmission Date: 20200122
  Serious: No
  Sender: FDA-Public Use
  Company Number: US-SUNOVION-2019SUN002577

PATIENT
  Sex: Female

DRUGS (1)
  1. LATUDA [Suspect]
     Active Substance: LURASIDONE HYDROCHLORIDE
     Indication: PRODUCT USED FOR UNKNOWN INDICATION
     Dosage: 1/2 TAB OF 20MG=10MG/DAY
     Route: 048

REACTIONS (3)
  - Anxiety [Unknown]
  - Therapeutic response unexpected [Unknown]
  - Wrong technique in product usage process [Unknown]
